FAERS Safety Report 8849584 (Version 2)
Quarter: 2012Q4

REPORT INFORMATION
  Report Type: 
  Country: US (occurrence: US)
  Receive Date: 20121019
  Receipt Date: 20121109
  Transmission Date: 20130627
  Serious: No
  Sender: FDA-Public Use
  Company Number: US-PFIZER INC-2012259667

PATIENT
  Sex: Male

DRUGS (2)
  1. NEURONTIN [Suspect]
  2. LYRICA [Suspect]

REACTIONS (1)
  - Drug hypersensitivity [Unknown]
